FAERS Safety Report 14424528 (Version 6)
Quarter: 2020Q3

REPORT INFORMATION
  Report Type: Spontaneous
  Country: US (occurrence: US)
  Receive Date: 20180123
  Receipt Date: 20200928
  Transmission Date: 20201102
  Serious: No
  Sender: FDA-Public Use
  Company Number: US-PFIZER INC-2018026010

PATIENT
  Age: 58 Year
  Sex: Female
  Weight: 93.44 kg

DRUGS (3)
  1. IBRANCE [Suspect]
     Active Substance: PALBOCICLIB
     Indication: BREAST CANCER METASTATIC
     Dosage: 125 MG, 1X/DAY
     Dates: start: 2017, end: 2017
  2. IBRANCE [Suspect]
     Active Substance: PALBOCICLIB
     Dosage: 100 MG, CYCLIC (ONCE DAILY EVERY NIGHT WITH DINNER/MIDDLE OF A BIG MEAL, 21 DAYS THEN OFF FOR 7 DAYS
     Route: 048
     Dates: start: 201710
  3. LETROZOLE. [Suspect]
     Active Substance: LETROZOLE
     Indication: BREAST CANCER METASTATIC
     Dosage: 2.5 MG, 1X/DAY [TAKES HER LETROZOLE IN THE AFTERNOON]
     Route: 048
     Dates: start: 201710

REACTIONS (9)
  - Dyspnoea [Unknown]
  - Nausea [Unknown]
  - Bone pain [Unknown]
  - Gingival bleeding [Unknown]
  - Asthenia [Unknown]
  - Abdominal discomfort [Not Recovered/Not Resolved]
  - Dizziness [Unknown]
  - Somnolence [Unknown]
  - Fatigue [Unknown]

NARRATIVE: CASE EVENT DATE: 20180815
